FAERS Safety Report 18349298 (Version 1)
Quarter: 2020Q4

REPORT INFORMATION
  Report Type: Spontaneous
  Country: FR (occurrence: FR)
  Receive Date: 20201006
  Receipt Date: 20201006
  Transmission Date: 20210114
  Serious: Yes (Hospitalization, Other)
  Sender: FDA-Public Use
  Company Number: FR-SA-2020SA274200

PATIENT

DRUGS (5)
  1. PERINDOPRIL [Concomitant]
     Active Substance: PERINDOPRIL
  2. ORBENINE [Suspect]
     Active Substance: CLOXACILLIN SODIUM
     Indication: SEPSIS
     Dosage: 12G/24H
     Route: 041
     Dates: start: 20190211, end: 20190212
  3. BISOPROLOL [BISOPROLOL FUMARATE] [Concomitant]
     Active Substance: BISOPROLOL FUMARATE
  4. RIFADINE [Suspect]
     Active Substance: RIFAMPIN
     Indication: SEPSIS
     Dosage: 600 MG, 1X (2 G?LULES DE 300 MG)
     Route: 048
     Dates: start: 20190212, end: 20190212
  5. LEVOTHYROX [Concomitant]
     Active Substance: LEVOTHYROXINE

REACTIONS (2)
  - Respiratory distress [Recovered/Resolved]
  - Angioedema [Recovered/Resolved]

NARRATIVE: CASE EVENT DATE: 20190212
